FAERS Safety Report 8127501-7 (Version None)
Quarter: 2012Q1

REPORT INFORMATION
  Report Type: 
  Country: None (occurrence: None)
  Receive Date: 20120210
  Receipt Date: 20120203
  Transmission Date: 20120608
  Serious: Yes (Hospitalization)
  Sender: FDA-Public Use
  Company Number: US-BAYER-201028189NA

PATIENT
  Age: 19 Year
  Sex: Female
  Weight: 75 kg

DRUGS (10)
  1. NAPROSYN [Concomitant]
     Indication: PAIN
  2. YASMIN [Suspect]
     Indication: OVARIAN FAILURE
  3. BONTRIL [Concomitant]
     Indication: MENSTRUAL CYCLE MANAGEMENT
     Dates: start: 20030401, end: 20050201
  4. SYNTHROID [Concomitant]
     Indication: HYPOTHYROIDISM
     Dosage: DAILY
     Dates: start: 19950101
  5. YASMIN [Suspect]
     Indication: MENSTRUAL CYCLE MANAGEMENT
  6. DIURETICS [Concomitant]
     Dates: start: 20000301, end: 20041101
  7. SPIRONOLACTONE [Concomitant]
     Dates: start: 20000301, end: 20041101
  8. YASMIN [Suspect]
     Indication: AMENORRHOEA
     Dosage: UNK UNK, QD
     Route: 048
     Dates: start: 20040801, end: 20040908
  9. YASMIN [Suspect]
     Indication: ORAL CONTRACEPTION
  10. PITUITARY HORMONE, ANTERIOR LOBE [Concomitant]

REACTIONS (6)
  - HAEMORRHAGIC CEREBRAL INFARCTION [None]
  - PNEUMONIA ASPIRATION [None]
  - CONFUSIONAL STATE [None]
  - TRANSVERSE SINUS THROMBOSIS [None]
  - HEADACHE [None]
  - CONVULSION [None]
